FAERS Safety Report 22356409 (Version 1)
Quarter: 2023Q2

REPORT INFORMATION
  Report Type: Spontaneous
  Country: CN (occurrence: CN)
  Receive Date: 20230523
  Receipt Date: 20230523
  Transmission Date: 20230722
  Serious: Yes (Hospitalization, Other)
  Sender: FDA-Public Use
  Company Number: CN-BAYER-2023A065753

PATIENT
  Age: 46 Year
  Sex: Male
  Weight: 60 kg

DRUGS (1)
  1. STIVARGA [Suspect]
     Active Substance: REGORAFENIB
     Indication: Hepatic cancer
     Dosage: 160 MG, QD
     Route: 048
     Dates: start: 20230301, end: 20230504

REACTIONS (6)
  - Drug eruption [Recovering/Resolving]
  - Skin ulcer [Recovering/Resolving]
  - Anal ulcer [Not Recovered/Not Resolved]
  - Scrotal ulcer [Not Recovered/Not Resolved]
  - Pain of skin [Recovering/Resolving]
  - Scab [Not Recovered/Not Resolved]

NARRATIVE: CASE EVENT DATE: 20230428
